FAERS Safety Report 20232011 (Version 1)
Quarter: 2021Q4

REPORT INFORMATION
  Report Type: Spontaneous
  Country: US (occurrence: US)
  Receive Date: 20211227
  Receipt Date: 20211227
  Transmission Date: 20220304
  Serious: No
  Sender: FDA-Public Use
  Company Number: US-JNJFOC-20211242429

PATIENT
  Sex: Male

DRUGS (2)
  1. STELARA [Suspect]
     Active Substance: USTEKINUMAB
     Indication: Crohn^s disease
     Route: 042
     Dates: start: 2020
  2. STELARA [Suspect]
     Active Substance: USTEKINUMAB
     Route: 042
     Dates: start: 20211210

REACTIONS (3)
  - Abdominal pain [Recovering/Resolving]
  - Diarrhoea [Recovering/Resolving]
  - Headache [Unknown]

NARRATIVE: CASE EVENT DATE: 20211201
